FAERS Safety Report 5361938-4 (Version None)
Quarter: 2007Q2

REPORT INFORMATION
  Report Type: 
  Country: None (occurrence: None)
  Receive Date: 20070619
  Receipt Date: 20070611
  Transmission Date: 20071010
  Serious: Yes (Hospitalization)
  Sender: FDA-Public Use
  Company Number: CN-AVENTIS-200712924EU

PATIENT
  Age: 44 Year
  Sex: Male
  Weight: 79 kg

DRUGS (4)
  1. CLEXANE [Suspect]
     Route: 058
     Dates: start: 20070516, end: 20070525
  2. CLEXANE [Suspect]
     Route: 058
     Dates: start: 20070516, end: 20070525
  3. BISOPROLOL FUMARATE [Concomitant]
     Indication: HYPERTENSION
     Route: 048
     Dates: start: 20070516
  4. BISOPROLOL FUMARATE [Concomitant]
     Indication: BRADYCARDIA
     Route: 048
     Dates: start: 20070516

REACTIONS (4)
  - ALANINE AMINOTRANSFERASE INCREASED [None]
  - ASPARTATE AMINOTRANSFERASE INCREASED [None]
  - HEPATITIS [None]
  - LIVER INJURY [None]
